FAERS Safety Report 21742225 (Version 2)
Quarter: 2023Q1

REPORT INFORMATION
  Report Type: Spontaneous
  Country: JP (occurrence: JP)
  Receive Date: 20221216
  Receipt Date: 20230222
  Transmission Date: 20230417
  Serious: Yes (Death, Life-Threatening, Hospitalization, Other)
  Sender: FDA-Public Use
  Company Number: JP-TAIHO-2022-000390

PATIENT
  Age: 71 Year
  Sex: Male
  Weight: 81.1 kg

DRUGS (6)
  1. ABRAXANE [Suspect]
     Active Substance: PACLITAXEL
     Indication: Pancreatic carcinoma
     Dosage: NI, 5 DOSES ?DETAILS NOT REPORTED, 9 DOSING DAYS DAILY DOSE: 200 MILLIGRAM(S)
     Route: 041
     Dates: start: 20220210, end: 20220421
  2. GEMZAR [Suspect]
     Active Substance: GEMCITABINE HYDROCHLORIDE
     Indication: Pancreatic carcinoma
     Dosage: NI, 5 DOSES, ROA: PARENTERAL?DETAILS NOT REPORTED, 9 DOSING DAYS DAILY DOSE: 1660 MILLIGRAM(S)
     Route: 051
     Dates: start: 20220210, end: 20220421
  3. SITAGLIPTIN [Concomitant]
     Active Substance: SITAGLIPTIN
     Indication: Product used for unknown indication
     Dates: start: 20210621, end: 20220428
  4. METFORMIN HYDROCHLORIDE [Concomitant]
     Active Substance: METFORMIN HYDROCHLORIDE
     Indication: Product used for unknown indication
     Dates: start: 20210621, end: 20220428
  5. ASPIRIN [Concomitant]
     Active Substance: ASPIRIN
     Indication: Product used for unknown indication
     Dates: start: 20211223, end: 20220428
  6. NEXIUM [Concomitant]
     Active Substance: ESOMEPRAZOLE MAGNESIUM
     Indication: Product used for unknown indication
     Dates: start: 20210822, end: 20220428

REACTIONS (1)
  - Interstitial lung disease [Fatal]

NARRATIVE: CASE EVENT DATE: 20220428
